FAERS Safety Report 20136419 (Version 1)
Quarter: 2021Q4

REPORT INFORMATION
  Report Type: Spontaneous
  Country: US (occurrence: None)
  Receive Date: 20211201
  Receipt Date: 20211201
  Transmission Date: 20220303
  Serious: No
  Sender: FDA-Public Use
  Company Number: None

PATIENT
  Sex: Female

DRUGS (1)
  1. AFINITOR [Suspect]
     Active Substance: EVEROLIMUS
     Indication: Hepatic cancer
     Dosage: FREQUENCY : DAILY;?
     Route: 048
     Dates: start: 201712

REACTIONS (6)
  - Stomatitis [None]
  - Oral mucosal erythema [None]
  - Leukoplakia oral [None]
  - Mouth ulceration [None]
  - Hypophagia [None]
  - Oral pain [None]
